FAERS Safety Report 20010674 (Version 1)
Quarter: 2021Q4

REPORT INFORMATION
  Report Type: Spontaneous
  Country: FR (occurrence: FR)
  Receive Date: 20211029
  Receipt Date: 20211029
  Transmission Date: 20220303
  Serious: Yes (Hospitalization)
  Sender: FDA-Public Use
  Company Number: None

PATIENT
  Age: 53 Year
  Sex: Female
  Weight: 65 kg

DRUGS (18)
  1. OCTREOTIDE ACETATE [Suspect]
     Active Substance: OCTREOTIDE ACETATE
     Indication: Oesophageal varices haemorrhage
     Dosage: 1200 UG, QD
     Route: 041
     Dates: start: 20210724, end: 20210727
  2. OCTREOTIDE ACETATE [Suspect]
     Active Substance: OCTREOTIDE ACETATE
  3. OCTREOTIDE ACETATE [Suspect]
     Active Substance: OCTREOTIDE ACETATE
  4. ERYTHROMYCIN [Suspect]
     Active Substance: ERYTHROMYCIN
     Indication: Oesophageal varices haemorrhage
     Dosage: 250 MG, QD (DOSE UNIQUE DE 250 MG)
     Route: 041
     Dates: start: 20210724, end: 20210724
  5. AMITRIPTYLINE HYDROCHLORIDE [Suspect]
     Active Substance: AMITRIPTYLINE HYDROCHLORIDE
     Indication: Major depression
     Dosage: 25 MG, QD
     Route: 048
     Dates: end: 20210725
  6. INIPOMP [Suspect]
     Active Substance: PANTOPRAZOLE SODIUM
     Indication: Oesophageal varices haemorrhage
     Dosage: 8 MG, QH
     Route: 041
     Dates: start: 20210724, end: 20210727
  7. INIPOMP [Suspect]
     Active Substance: PANTOPRAZOLE SODIUM
     Dosage: 80 MG, QD (80 MG BOLUS)
     Route: 040
     Dates: start: 20210724, end: 20210724
  8. SUFENTANIL [Suspect]
     Active Substance: SUFENTANIL
     Indication: General anaesthesia
     Dosage: 90 MG (90 MG AU TOTAL)
     Route: 041
     Dates: start: 20210725, end: 20210726
  9. PROPOFOL [Suspect]
     Active Substance: PROPOFOL
     Indication: General anaesthesia
     Dosage: 1600 MG (1600 MG AU TOTAL)
     Route: 041
     Dates: start: 20210725, end: 20210726
  10. DUPHALAC [Concomitant]
     Active Substance: LACTULOSE
     Indication: Hepatic encephalopathy
     Dosage: 90 G, QD (3 SACHETS 3 FOIS PAR JOUR)
     Route: 048
     Dates: start: 20210725
  11. ALBUMIN HUMAN [Concomitant]
     Active Substance: ALBUMIN HUMAN
     Indication: Hepatic encephalopathy
     Dosage: 60 G, QD
     Route: 041
     Dates: start: 20210725, end: 20210726
  12. ALBUMIN HUMAN [Concomitant]
     Active Substance: ALBUMIN HUMAN
     Dosage: 40 G, QD
     Route: 041
     Dates: start: 20210726, end: 20210727
  13. CEFTRIAXONE SODIUM [Concomitant]
     Active Substance: CEFTRIAXONE SODIUM
     Indication: Hepatic encephalopathy
     Dosage: 1 G, QD
     Route: 041
     Dates: start: 20210724, end: 20210730
  14. BROMAZEPAM [Concomitant]
     Active Substance: BROMAZEPAM
     Indication: Anxiety
     Dosage: 4.5 MG, QD
     Route: 065
     Dates: end: 20210724
  15. NOREPINEPHRINE [Concomitant]
     Active Substance: NOREPINEPHRINE
     Indication: Hypotension
     Dosage: 0.2 ?G/KG (0,2 ?G/KG/MIN)
     Route: 041
     Dates: start: 20210725, end: 20210726
  16. ACUPAN [Concomitant]
     Active Substance: NEFOPAM HYDROCHLORIDE
     Indication: Abdominal pain
     Dosage: 20 MG, QD (20 MG EN DOSE UNIQUE)
     Route: 041
     Dates: start: 20210724, end: 20210724
  17. GLICLAZIDE [Concomitant]
     Active Substance: GLICLAZIDE
     Indication: Type 2 diabetes mellitus
     Dosage: 30 MG, QD
     Route: 048
     Dates: end: 20210724
  18. RIFAXIMIN [Concomitant]
     Active Substance: RIFAXIMIN
     Indication: Hepatic encephalopathy
     Dosage: 1100 MG, QD (550 MG 2 FOIS/JOUR)
     Route: 048
     Dates: start: 20210725

REACTIONS (2)
  - Electrocardiogram QT prolonged [Recovered/Resolved]
  - Torsade de pointes [Recovered/Resolved]

NARRATIVE: CASE EVENT DATE: 20210727
